FAERS Safety Report 16473022 (Version 2)
Quarter: 2019Q3

REPORT INFORMATION
  Report Type: Report from Study
  Country: BR (occurrence: BR)
  Receive Date: 20190625
  Receipt Date: 20190822
  Transmission Date: 20191004
  Serious: Yes (Other)
  Sender: FDA-Public Use
  Company Number: BR-UCBSA-2019025759

PATIENT
  Age: 50 Year
  Sex: Female
  Weight: 85 kg

DRUGS (2)
  1. PURAN [Concomitant]
     Active Substance: LEVOTHYROXINE SODIUM
     Indication: HYPOTHYROIDISM
     Dosage: UNK
     Route: 048
  2. CERTOLIZUMAB PEGOL [Suspect]
     Active Substance: CERTOLIZUMAB PEGOL
     Indication: RHEUMATOID ARTHRITIS
     Dosage: UNK
     Route: 058
     Dates: start: 20190423

REACTIONS (9)
  - Insomnia [Recovering/Resolving]
  - Pharyngitis [Recovering/Resolving]
  - Nodule [Recovering/Resolving]
  - Myocardial infarction [Recovering/Resolving]
  - Aphonia [Recovering/Resolving]
  - Acute sinusitis [Unknown]
  - Drug ineffective [Unknown]
  - Pneumonia [Unknown]
  - Dyspnoea [Recovering/Resolving]

NARRATIVE: CASE EVENT DATE: 2019
